FAERS Safety Report 4429406-1 (Version None)
Quarter: 2004Q3

REPORT INFORMATION
  Report Type: 
  Country: None (occurrence: None)
  Receive Date: 20040819
  Receipt Date: 20040715
  Transmission Date: 20050211
  Serious: Yes (Hospitalization)
  Sender: FDA-Public Use
  Company Number: PHBS2004JP09418

PATIENT
  Age: 43 Year
  Sex: Female

DRUGS (9)
  1. TOFRANIL [Suspect]
     Indication: DEPRESSION
     Dosage: 25 MG, TID
     Route: 048
     Dates: start: 20010606, end: 20010612
  2. TOFRANIL [Suspect]
     Dosage: 50 MG, TID
     Route: 048
     Dates: start: 20010613, end: 20010618
  3. TOFRANIL [Suspect]
     Dosage: 25 MG, QID
     Route: 048
     Dates: start: 20010619, end: 20010620
  4. TRYPTANOL [Suspect]
     Indication: DEPRESSION
     Dosage: 25 MG, QD
     Route: 048
     Dates: start: 20010522, end: 20010612
  5. DEPAS [Concomitant]
     Indication: DEPRESSION
     Dosage: 1 MG, TID
     Route: 048
     Dates: start: 20010606, end: 20010620
  6. ROHYPNOL [Suspect]
     Indication: INSOMNIA
     Dosage: 1 MG, QD
     Route: 048
     Dates: start: 20010522, end: 20010612
  7. ROHYPNOL [Suspect]
     Dosage: 2 MG, QD
     Route: 048
     Dates: start: 20010613, end: 20010618
  8. LENDORM [Suspect]
     Indication: INSOMNIA
     Dosage: .25 MG, QD
     Route: 048
     Dates: start: 20010619, end: 20010620
  9. TETRAMIDE [Concomitant]
     Indication: DEPRESSION
     Dosage: 30 - 60 MG/DAY
     Route: 048
     Dates: start: 20010522, end: 20010605

REACTIONS (6)
  - DERMATITIS EXFOLIATIVE [None]
  - DRUG ERUPTION [None]
  - ECZEMA [None]
  - ERYTHEMA [None]
  - RASH MACULO-PAPULAR [None]
  - URTICARIA [None]
